FAERS Safety Report 15694329 (Version 7)
Quarter: 2019Q1

REPORT INFORMATION
  Report Type: Spontaneous
  Country: JP (occurrence: JP)
  Receive Date: 20181206
  Receipt Date: 20190320
  Transmission Date: 20190417
  Serious: Yes (Hospitalization, Other)
  Sender: FDA-Public Use
  Company Number: JP-GLAXOSMITHKLINE-JP2018JPN218678

PATIENT
  Age: 15 Year
  Sex: Male
  Weight: 50 kg

DRUGS (3)
  1. DEMETHOX [Concomitant]
     Indication: EMOTIONAL DISORDER OF CHILDHOOD
     Dosage: 0.5 MG, UNK
     Route: 048
     Dates: start: 20180517, end: 20180531
  2. ETHYL LOFLAZEPATE [Concomitant]
     Active Substance: ETHYL LOFLAZEPATE
     Indication: EMOTIONAL DISORDER OF CHILDHOOD
     Dosage: 0.5 MG, UNK
     Route: 048
     Dates: start: 20180601, end: 20180628
  3. LAMICTAL [Suspect]
     Active Substance: LAMOTRIGINE
     Indication: BIPOLAR DISORDER
     Dosage: 25 MG, QD
     Route: 048
     Dates: start: 20180517, end: 20180628

REACTIONS (11)
  - Generalised erythema [Recovered/Resolved]
  - Oral mucosal erythema [Recovered/Resolved]
  - Product use issue [Unknown]
  - Drug reaction with eosinophilia and systemic symptoms [Recovered/Resolved]
  - Rash generalised [Recovered/Resolved]
  - Dyspnoea [Recovered/Resolved]
  - Pyrexia [Recovered/Resolved]
  - Pruritus generalised [Recovered/Resolved]
  - Off label use [Unknown]
  - Ocular hyperaemia [Recovered/Resolved]
  - Lip erythema [Recovered/Resolved]

NARRATIVE: CASE EVENT DATE: 2018
